FAERS Safety Report 5866617-2 (Version None)
Quarter: 2008Q3

REPORT INFORMATION
  Report Type: 
  Country: None (occurrence: None)
  Receive Date: 20080827
  Receipt Date: 20080812
  Transmission Date: 20090109
  Serious: Yes (Hospitalization, Other)
  Sender: FDA-Public Use
  Company Number: MK-6037243

PATIENT
  Age: 47 Year
  Sex: Male

DRUGS (4)
  1. CIPROFLOXACIN HCL [Suspect]
     Indication: EPIDIDYMAL INFECTION
     Dosage: 500 MG; TWICE A DAY, ORAL
     Route: 048
  2. CLOZAPINE [Suspect]
     Indication: SCHIZOPHRENIA, PARANOID TYPE
     Dosage: 750 MG; DAILY
  3. AMISULPRIDE [Suspect]
  4. LORAZEPAM [Concomitant]

REACTIONS (4)
  - ANTIPSYCHOTIC DRUG LEVEL ABOVE THERAPEUTIC [None]
  - DRUG EFFECT INCREASED [None]
  - DRUG INTERACTION [None]
  - TACHYCARDIA [None]
